FAERS Safety Report 13053572 (Version 1)
Quarter: 2016Q4

REPORT INFORMATION
  Report Type: Spontaneous
  Country: US (occurrence: US)
  Receive Date: 20161222
  Receipt Date: 20161222
  Transmission Date: 20170207
  Serious: No
  Sender: FDA-Public Use
  Company Number: US-009507513-1612USA011347

PATIENT
  Sex: Male

DRUGS (2)
  1. LAMIVUDINE AND ZIDOVUDINE [Suspect]
     Active Substance: LAMIVUDINE\ZIDOVUDINE
     Dosage: UNK
  2. ISENTRESS [Suspect]
     Active Substance: RALTEGRAVIR POTASSIUM
     Dosage: UNK

REACTIONS (2)
  - Low birth weight baby [Unknown]
  - Foetal exposure during pregnancy [Unknown]
